FAERS Safety Report 7210794-8 (Version None)
Quarter: 2011Q1

REPORT INFORMATION
  Report Type: 
  Country: None (occurrence: None)
  Receive Date: 20110105
  Receipt Date: 20101025
  Transmission Date: 20110831
  Serious: Yes (Other)
  Sender: FDA-Public Use
  Company Number: PHHY2010US73964

PATIENT
  Age: 20 Year
  Sex: Female

DRUGS (2)
  1. DEFEROXAMINE MESYLATE [Suspect]
     Indication: CHELATION THERAPY
     Dosage: 40 MG/KG FOUR DAYS A WEEK, 50 MG/KG IV MONTHLY
     Route: 058
  2. DEFEROXAMINE MESYLATE [Suspect]
     Dosage: 50 MG/KG/DAY SC, 80 MG/KG IV
     Route: 058

REACTIONS (4)
  - DEVICE RELATED SEPSIS [None]
  - SERUM FERRITIN INCREASED [None]
  - DRUG EXPOSURE DURING PREGNANCY [None]
  - WEIGHT INCREASED [None]
